FAERS Safety Report 10635907 (Version 3)
Quarter: 2014Q4

REPORT INFORMATION
  Report Type: Spontaneous
  Country: US (occurrence: US)
  Receive Date: 20141205
  Receipt Date: 20141211
  Transmission Date: 20150529
  Serious: No
  Sender: FDA-Public Use
  Company Number: US-PFIZER INC-2014161173

PATIENT
  Age: 73 Year
  Sex: Female
  Weight: 115 kg

DRUGS (3)
  1. LYRICA [Suspect]
     Active Substance: PREGABALIN
     Indication: NEUROPATHY PERIPHERAL
     Dosage: 50 MG MORNING AND 150 MG IN NIGHT
  2. VITAMIN D [Concomitant]
     Active Substance: CHOLECALCIFEROL
     Dosage: UNK
  3. LYRICA [Suspect]
     Active Substance: PREGABALIN
     Indication: FIBROMYALGIA

REACTIONS (7)
  - Increased appetite [Unknown]
  - Drug ineffective [Unknown]
  - Insomnia [Unknown]
  - Weight increased [Unknown]
  - Arthritis [Unknown]
  - Anxiety [Unknown]
  - Back pain [Unknown]
